FAERS Safety Report 11774217 (Version 1)
Quarter: 2015Q4

REPORT INFORMATION
  Report Type: Spontaneous
  Country: ES (occurrence: ES)
  Receive Date: 20151124
  Receipt Date: 20151124
  Transmission Date: 20160304
  Serious: Yes (Other)
  Sender: FDA-Public Use
  Company Number: PHHY2015ES148060

PATIENT
  Age: 36 Year
  Sex: Female

DRUGS (1)
  1. HYDROXYCHLOROQUINE [Suspect]
     Active Substance: HYDROXYCHLOROQUINE
     Indication: POLYMORPHIC LIGHT ERUPTION
     Dosage: 200 MG, Q12H
     Route: 065

REACTIONS (4)
  - Interstitial lung disease [Recovered/Resolved]
  - Diarrhoea [Unknown]
  - Vision blurred [Unknown]
  - Irritability [Unknown]
